FAERS Safety Report 24170135 (Version 1)
Quarter: 2024Q3

REPORT INFORMATION
  Report Type: Report from Study
  Country: BR (occurrence: BR)
  Receive Date: 20240803
  Receipt Date: 20240803
  Transmission Date: 20241017
  Serious: Yes (Life-Threatening, Hospitalization)
  Sender: NOVARTIS
  Company Number: BR-002147023-NVSC2024BR153382

PATIENT
  Sex: Female
  Weight: 72 kg

DRUGS (2)
  1. ENTRESTO [Suspect]
     Active Substance: SACUBITRIL\VALSARTAN
     Indication: Cardiac failure
     Dosage: 200 MG, BID
     Route: 048
     Dates: start: 202301
  2. ENTRESTO [Suspect]
     Active Substance: SACUBITRIL\VALSARTAN
     Dosage: 50 MG
     Route: 065

REACTIONS (9)
  - Infarction [Recovering/Resolving]
  - Tissue infiltration [Unknown]
  - Weight decreased [Unknown]
  - Influenza [Unknown]
  - Breast pain [Unknown]
  - Dyspnoea [Unknown]
  - Vomiting [Unknown]
  - Cough [Unknown]
  - Weight increased [Unknown]
